FAERS Safety Report 9621642 (Version 1)
Quarter: 2013Q4

REPORT INFORMATION
  Report Type: Spontaneous
  Country: NZ (occurrence: NZ)
  Receive Date: 20131015
  Receipt Date: 20131015
  Transmission Date: 20140711
  Serious: Yes (Other)
  Sender: FDA-Public Use
  Company Number: NZ-PFIZER INC-2013289332

PATIENT
  Sex: Male

DRUGS (1)
  1. LIGNOCAINE [Suspect]
     Dosage: 2%, 3X/DAY

REACTIONS (3)
  - Arthropathy [Unknown]
  - Expired drug administered [Unknown]
  - Bladder irritation [Unknown]
